FAERS Safety Report 24452298 (Version 1)
Quarter: 2024Q4

REPORT INFORMATION
  Report Type: Spontaneous
  Country: US (occurrence: US)
  Receive Date: 20241017
  Receipt Date: 20241017
  Transmission Date: 20250115
  Serious: No
  Sender: SUNOVION
  Company Number: US-UROVANT SCIENCES GMBH-202402-URV-000224

PATIENT

DRUGS (1)
  1. GEMTESA [Suspect]
     Active Substance: VIBEGRON
     Indication: Product used for unknown indication
     Dosage: 37.5 MG, HALF TABLET
     Route: 065

REACTIONS (8)
  - Flushing [Unknown]
  - Pruritus [Unknown]
  - Vomiting [Unknown]
  - Headache [Unknown]
  - Nausea [Unknown]
  - Drug intolerance [Unknown]
  - Intentional underdose [Unknown]
  - Wrong technique in product usage process [Unknown]
